FAERS Safety Report 9071948 (Version 1)
Quarter: 2013Q1

REPORT INFORMATION
  Report Type: Spontaneous
  Country: GR (occurrence: GR)
  Receive Date: 20130129
  Receipt Date: 20130129
  Transmission Date: 20140127
  Serious: Yes (Hospitalization, Other)
  Sender: FDA-Public Use
  Company Number: GR-ROCHE-1182208

PATIENT
  Age: 7 Month
  Sex: 0

DRUGS (1)
  1. CEFTRIAXONE [Suspect]
     Indication: MENINGITIS
     Dosage: EVERY 24 HRS
     Route: 042

REACTIONS (3)
  - Drug ineffective [Unknown]
  - White blood cell count decreased [Recovered/Resolved]
  - Infection [Recovered/Resolved]
